FAERS Safety Report 7374603-9 (Version None)
Quarter: 2011Q1

REPORT INFORMATION
  Report Type: 
  Country: None (occurrence: None)
  Receive Date: 20110325
  Receipt Date: 20100422
  Transmission Date: 20110831
  Serious: No
  Sender: FDA-Public Use
  Company Number: US-MYLANLABS-2010S1007242

PATIENT
  Age: 44 Year
  Sex: Female

DRUGS (1)
  1. FENTANYL-100 [Suspect]
     Indication: CANCER PAIN
     Dosage: CHANGED Q72H
     Route: 062
     Dates: start: 20090101

REACTIONS (4)
  - DRUG EFFECT DECREASED [None]
  - PAIN [None]
  - DRUG WITHDRAWAL SYNDROME [None]
  - APPLICATION SITE RASH [None]
